FAERS Safety Report 25750648 (Version 1)
Quarter: 2025Q3

REPORT INFORMATION
  Report Type: Spontaneous
  Country: US (occurrence: None)
  Receive Date: 20250829
  Receipt Date: 20250829
  Transmission Date: 20251021
  Serious: No
  Sender: FDA-CTU
  Company Number: None

PATIENT
  Age: 62 Year
  Sex: Male
  Weight: 76.6 kg

DRUGS (1)
  1. POMALYST [Suspect]
     Active Substance: POMALIDOMIDE
     Indication: Plasma cell myeloma
     Dosage: 4 MG DAILY ORAL
     Dates: start: 20250827

REACTIONS (4)
  - Headache [None]
  - Pyrexia [None]
  - Rash pruritic [None]
  - Flushing [None]

NARRATIVE: CASE EVENT DATE: 20250827
